FAERS Safety Report 4339934-5 (Version None)
Quarter: 2004Q2

REPORT INFORMATION
  Report Type: 
  Country: None (occurrence: None)
  Receive Date: 20040416
  Receipt Date: 20010129
  Transmission Date: 20050107
  Serious: Yes (Hospitalization)
  Sender: FDA-Public Use
  Company Number: FR-GLAXOSMITHKLINE-B0097442A

PATIENT
  Sex: Male
  Weight: 3.9 kg

DRUGS (8)
  1. RETROVIR [Suspect]
     Indication: ANTIVIRAL PROPHYLAXIS
     Route: 048
     Dates: start: 19981211
  2. DIDANOSINE [Suspect]
     Indication: ANTIVIRAL PROPHYLAXIS
     Route: 048
     Dates: start: 19981211
  3. RETROVIR [Suspect]
     Dates: start: 19981211, end: 19981211
  4. RETROVIR [Suspect]
     Indication: HIV INFECTION
  5. DIDANOSINE [Suspect]
     Indication: HIV INFECTION
  6. CO-TRIMOXAZOLE [Concomitant]
  7. IRON [Concomitant]
  8. MULTI-VITAMINS [Concomitant]

REACTIONS (8)
  - ACQUIRED MACROCEPHALY [None]
  - BLOOD LACTIC ACID INCREASED [None]
  - DRUG EXPOSURE DURING PREGNANCY [None]
  - HYPOTONIA [None]
  - MACROCYTOSIS [None]
  - METABOLIC DISORDER [None]
  - NEUTROPENIA [None]
  - SPEECH DISORDER DEVELOPMENTAL [None]
